FAERS Safety Report 25931662 (Version 1)
Quarter: 2025Q4

REPORT INFORMATION
  Report Type: Spontaneous
  Country: CA (occurrence: CA)
  Receive Date: 20251016
  Receipt Date: 20251016
  Transmission Date: 20260118
  Serious: Yes (Other)
  Sender: SANDOZ
  Company Number: CA-SANDOZ-SDZ2025CA076223

PATIENT
  Age: 40 Year
  Sex: Male

DRUGS (6)
  1. CIPROFLOXACIN [Suspect]
     Active Substance: CIPROFLOXACIN
     Indication: Fistula
     Dosage: UNK
     Route: 065
  2. REMICADE [Suspect]
     Active Substance: INFLIXIMAB
     Indication: Crohn^s disease
     Dosage: 1000 MG (1 EVERY 4 WEEKS)
     Route: 041
  3. REMICADE [Suspect]
     Active Substance: INFLIXIMAB
     Dosage: 1000 MG (1 EVERY 4 WEEKS)
     Route: 041
  4. REMICADE [Suspect]
     Active Substance: INFLIXIMAB
     Dosage: 1000 MG (1 EVERY 4 WEEKS)
     Route: 041
  5. REMICADE [Suspect]
     Active Substance: INFLIXIMAB
     Dosage: 1000 MG (1 EVERY 4 WEEKS)
     Route: 041
  6. REMICADE [Suspect]
     Active Substance: INFLIXIMAB
     Dosage: 1000 MG (1 EVERY 4 WEEKS) POWDER FOR SOLUTION
     Route: 041

REACTIONS (6)
  - COVID-19 [Recovering/Resolving]
  - Fistula [Recovering/Resolving]
  - Inflammation [Recovering/Resolving]
  - Lower respiratory tract infection [Recovering/Resolving]
  - Photosensitivity reaction [Recovering/Resolving]
  - Inappropriate schedule of product administration [Recovering/Resolving]
